FAERS Safety Report 7808386-2 (Version None)
Quarter: 2011Q4

REPORT INFORMATION
  Report Type: 
  Country: None (occurrence: None)
  Receive Date: 20111011
  Receipt Date: 20111011
  Transmission Date: 20120403
  Serious: Yes (Other)
  Sender: FDA-Public Use
  Company Number: None

PATIENT
  Age: 61 Year
  Sex: Female

DRUGS (4)
  1. FAMOTIDINE [Concomitant]
  2. HYDROCODONE BITARTRATE AND ACETAMINOPHEN [Concomitant]
  3. BUPROPION HCL [Concomitant]
  4. REVLIMID [Suspect]
     Indication: MULTIPLE MYELOMA
     Dosage: REVLIMID 25 MG DAILY X21D/28D ORALLY
     Route: 048
     Dates: start: 20110601

REACTIONS (2)
  - ASTHENIA [None]
  - DIARRHOEA [None]
